FAERS Safety Report 7097494-2 (Version None)
Quarter: 2010Q4

REPORT INFORMATION
  Report Type: 
  Country: None (occurrence: None)
  Receive Date: 20101111
  Receipt Date: 20101102
  Transmission Date: 20110411
  Serious: Yes (Hospitalization, Other)
  Sender: FDA-Public Use
  Company Number: SE-GENENTECH-309308

PATIENT
  Age: 77 Year
  Sex: Male

DRUGS (11)
  1. MABTHERA [Suspect]
     Indication: CHRONIC LYMPHOCYTIC LEUKAEMIA
     Dosage: UNK
     Route: 065
     Dates: start: 20091210
  2. FLUDARABINE [Suspect]
     Indication: CHRONIC LYMPHOCYTIC LEUKAEMIA
     Dosage: UNK
     Route: 065
     Dates: start: 20091210
  3. CYCLOPHOSPHAMIDE [Suspect]
     Indication: CHRONIC LYMPHOCYTIC LEUKAEMIA
     Dosage: UNK
     Route: 065
     Dates: start: 20091210
  4. DOXYFERM [Suspect]
     Indication: PRURITUS
     Dosage: UNK
     Route: 065
     Dates: end: 20100101
  5. EUSAPRIM [Concomitant]
     Indication: PROPHYLAXIS
     Dosage: UNK
     Dates: start: 20100209
  6. MEROPENEM [Concomitant]
     Dosage: UNK
     Route: 042
  7. CIPROXIN [Concomitant]
     Dosage: UNK
     Route: 048
  8. ENALAPRIL MALEATE [Concomitant]
     Dosage: UNK
  9. IMIPENEM AND CILASTATIN [Concomitant]
     Dosage: UNK
  10. NEUPOGEN [Concomitant]
     Dosage: UNK
  11. CEFADROXIL [Concomitant]
     Dosage: UNK

REACTIONS (13)
  - C-REACTIVE PROTEIN INCREASED [None]
  - CHILLS [None]
  - COUGH [None]
  - DIARRHOEA [None]
  - DIZZINESS [None]
  - ECZEMA [None]
  - FEBRILE NEUTROPENIA [None]
  - INCREASED UPPER AIRWAY SECRETION [None]
  - LEUKOPENIA [None]
  - NEUTROPENIA [None]
  - PRURITUS [None]
  - SEPSIS [None]
  - THROMBOCYTOPENIA [None]
